FAERS Safety Report 8221326-X (Version None)
Quarter: 2012Q1

REPORT INFORMATION
  Report Type: 
  Country: None (occurrence: None)
  Receive Date: 20120320
  Receipt Date: 20120316
  Transmission Date: 20120608
  Serious: Yes (Death, Other)
  Sender: FDA-Public Use
  Company Number: PHHY2012CR023758

PATIENT
  Sex: Male

DRUGS (2)
  1. PANTOPRAZOLE [Suspect]
     Dosage: 40 MG, UNK
  2. DIOVAN HCT [Suspect]
     Dosage: 320/25 MG, UNK

REACTIONS (2)
  - EMPHYSEMA [None]
  - DEATH [None]
